FAERS Safety Report 7000795-7 (Version None)
Quarter: 2010Q3

REPORT INFORMATION
  Report Type: 
  Country: None (occurrence: None)
  Receive Date: 20100920
  Receipt Date: 20091105
  Transmission Date: 20110219
  Serious: No
  Sender: FDA-Public Use
  Company Number: US-ASTRAZENECA-2009SE24667

PATIENT
  Age: 83 Year
  Sex: Male

DRUGS (10)
  1. SEROQUEL [Suspect]
     Indication: SLEEP DISORDER
     Route: 048
     Dates: start: 20090622
  2. SEROQUEL [Suspect]
     Indication: CONVULSION
     Route: 048
     Dates: start: 20090622
  3. SEROQUEL [Suspect]
     Indication: SCHIZOPHRENIA
     Route: 048
     Dates: start: 20090622
  4. PANTOPRAZOLE [Concomitant]
  5. OXYCODONE HCL [Concomitant]
  6. POTASSIUM CHLORIDE [Concomitant]
  7. INSULIN [Concomitant]
  8. ERGO-CAFF [Concomitant]
  9. DILTIAZEM HCL [Concomitant]
  10. LEVETIRACETAM [Concomitant]

REACTIONS (3)
  - FEEDING DISORDER [None]
  - MUSCLE TWITCHING [None]
  - SOMNOLENCE [None]
